FAERS Safety Report 11917892 (Version 1)
Quarter: 2016Q1

REPORT INFORMATION
  Report Type: Report from Study
  Country: PL (occurrence: PL)
  Receive Date: 20160114
  Receipt Date: 20160114
  Transmission Date: 20160526
  Serious: Yes (Hospitalization)
  Sender: FDA-Public Use
  Company Number: PL-BIOGEN-2015BI110158

PATIENT
  Age: 41 Year
  Sex: Female
  Weight: 78 kg

DRUGS (12)
  1. UROSEPT [Concomitant]
     Route: 048
     Dates: start: 20140616
  2. AUGMENTIN [Concomitant]
     Active Substance: AMOXICILLIN\CLAVULANATE POTASSIUM
     Indication: UPPER RESPIRATORY TRACT INFECTION
     Route: 048
     Dates: start: 20150709
  3. VENTOLIN [Concomitant]
     Active Substance: ALBUTEROL SULFATE
     Indication: ASTHMA
     Route: 061
     Dates: start: 20150731, end: 20150804
  4. BIIB033 [Suspect]
     Active Substance: OPICINUMAB
     Indication: MULTIPLE SCLEROSIS
     Route: 042
     Dates: start: 20140317
  5. THEOSPIREX RETARD [Concomitant]
     Indication: ASTHMA
     Route: 048
     Dates: start: 20150720
  6. AVONEX [Concomitant]
     Active Substance: INTERFERON BETA-1A
     Indication: MULTIPLE SCLEROSIS
     Route: 030
     Dates: start: 20140317
  7. ISOPTIN SR [Concomitant]
     Active Substance: VERAPAMIL HYDROCHLORIDE
     Indication: HYPERTENSION
     Route: 048
     Dates: start: 2002
  8. THEOSPIREX RETARD [Concomitant]
     Indication: UPPER RESPIRATORY TRACT INFECTION
     Route: 048
     Dates: start: 20150709
  9. STEDIRIL [Concomitant]
     Active Substance: ETHINYL ESTRADIOL\NORGESTREL
     Indication: CONTRACEPTION
     Route: 048
     Dates: start: 20130302
  10. TIALORID MITE [Concomitant]
     Indication: HYPERTENSION
     Route: 048
     Dates: start: 2002
  11. FANIPOS [Concomitant]
     Indication: UPPER RESPIRATORY TRACT INFECTION
     Route: 045
     Dates: start: 20150709
  12. UROSEPT [Concomitant]
     Indication: PROPHYLAXIS URINARY TRACT INFECTION
     Route: 048
     Dates: start: 20140616

REACTIONS (1)
  - Multiple sclerosis relapse [Recovered/Resolved with Sequelae]

NARRATIVE: CASE EVENT DATE: 20150731
